FAERS Safety Report 16336014 (Version 1)
Quarter: 2019Q2

REPORT INFORMATION
  Report Type: Report from Study
  Country: AE (occurrence: AE)
  Receive Date: 20190521
  Receipt Date: 20190521
  Transmission Date: 20190711
  Serious: Yes (Other)
  Sender: FDA-Public Use
  Company Number: AE-ROCHE-2315818

PATIENT

DRUGS (14)
  1. ASPIRIN [ACETYLSALICYLIC ACID] [Interacting]
     Active Substance: ASPIRIN
     Indication: CARDIAC DISORDER
     Route: 065
  2. INSULIN [Interacting]
     Active Substance: INSULIN NOS
     Indication: CARDIAC DISORDER
     Route: 065
  3. DILTIAZEM. [Interacting]
     Active Substance: DILTIAZEM
     Indication: CARDIAC DISORDER
     Route: 065
  4. ATORVASTATIN [Interacting]
     Active Substance: ATORVASTATIN
     Indication: CARDIAC DISORDER
     Route: 065
  5. PERINDOPRIL [Interacting]
     Active Substance: PERINDOPRIL
     Indication: CARDIAC DISORDER
     Route: 065
  6. METFORMIN [Interacting]
     Active Substance: METFORMIN HYDROCHLORIDE
     Indication: CARDIAC DISORDER
     Route: 065
  7. AMLODIPINE [Interacting]
     Active Substance: AMLODIPINE BESYLATE
     Indication: CARDIAC DISORDER
     Route: 065
  8. LOSARTAN. [Interacting]
     Active Substance: LOSARTAN
     Indication: CARDIAC DISORDER
     Route: 065
  9. TENECTEPLASE [Suspect]
     Active Substance: TENECTEPLASE
     Indication: CARDIAC DISORDER
     Route: 065
  10. ENOXAPARIN [Interacting]
     Active Substance: ENOXAPARIN
     Indication: CARDIAC DISORDER
     Route: 065
  11. FUROSEMIDE. [Interacting]
     Active Substance: FUROSEMIDE
     Indication: CARDIAC DISORDER
     Route: 065
  12. BISOPROLOL [Interacting]
     Active Substance: BISOPROLOL
     Indication: CARDIAC DISORDER
     Route: 065
  13. CLOPIDOGREL [Interacting]
     Active Substance: CLOPIDOGREL BISULFATE
     Indication: CARDIAC DISORDER
     Route: 065
  14. SPIRONOLACTONE. [Interacting]
     Active Substance: SPIRONOLACTONE
     Indication: CARDIAC DISORDER
     Route: 065

REACTIONS (6)
  - Bradycardia [Unknown]
  - Drug interaction [Unknown]
  - Hyperkalaemia [Unknown]
  - Hypokalaemia [Unknown]
  - Prothrombin time prolonged [Unknown]
  - Haemorrhage [Unknown]
